FAERS Safety Report 24443966 (Version 2)
Quarter: 2024Q4

REPORT INFORMATION
  Report Type: Report from Study
  Country: CA (occurrence: CA)
  Receive Date: 20241016
  Receipt Date: 20241017
  Transmission Date: 20250114
  Serious: No
  Sender: ROCHE
  Company Number: CA-ROCHE-2652340

PATIENT
  Age: 77 Year
  Sex: Female

DRUGS (21)
  1. RITUXAN [Suspect]
     Active Substance: RITUXIMAB
     Indication: Rheumatoid arthritis
     Dosage: ONGOING
     Route: 042
     Dates: start: 20200730
  2. RITUXAN [Suspect]
     Active Substance: RITUXIMAB
     Route: 042
  3. RITUXAN [Suspect]
     Active Substance: RITUXIMAB
     Route: 042
  4. RITUXAN [Suspect]
     Active Substance: RITUXIMAB
     Route: 042
  5. RITUXAN [Suspect]
     Active Substance: RITUXIMAB
     Route: 042
  6. RITUXAN [Suspect]
     Active Substance: RITUXIMAB
     Route: 042
  7. RITUXAN [Suspect]
     Active Substance: RITUXIMAB
     Route: 042
  8. RITUXAN [Suspect]
     Active Substance: RITUXIMAB
     Route: 042
  9. CRESTOR [Concomitant]
     Active Substance: ROSUVASTATIN CALCIUM
  10. FUROSEMIDE [Concomitant]
     Active Substance: FUROSEMIDE
  11. LOSARTAN [Concomitant]
     Active Substance: LOSARTAN
  12. MELOXICAM [Concomitant]
     Active Substance: MELOXICAM
  13. METOPROLOL [Concomitant]
     Active Substance: METOPROLOL
  14. PLAQUENIL [Concomitant]
     Active Substance: HYDROXYCHLOROQUINE SULFATE
  15. SULFASALAZINE [Concomitant]
     Active Substance: SULFASALAZINE
  16. BENADRYL [Concomitant]
     Active Substance: DIPHENHYDRAMINE HYDROCHLORIDE
     Indication: Premedication
     Route: 048
     Dates: start: 20200730
  17. SOLU-MEDROL [Concomitant]
     Active Substance: METHYLPREDNISOLONE SODIUM SUCCINATE
     Indication: Premedication
     Route: 042
     Dates: start: 20200730
  18. SYNTHROID [Concomitant]
     Active Substance: LEVOTHYROXINE SODIUM
  19. TYLENOL [Concomitant]
     Active Substance: ACETAMINOPHEN
     Indication: Premedication
     Route: 048
     Dates: start: 20200730
  20. BACLOFEN [Concomitant]
     Active Substance: BACLOFEN
  21. PURINOL [METHENAMINE ANHYDROMETHYLENECITRATE] [Concomitant]
     Indication: Product used for unknown indication

REACTIONS (8)
  - Blood pressure diastolic abnormal [Unknown]
  - Blood pressure systolic increased [Unknown]
  - Blood pressure systolic abnormal [Unknown]
  - Flushing [Recovered/Resolved]
  - Heart rate decreased [Unknown]
  - Hypotension [Unknown]
  - Infusion related reaction [Unknown]
  - Blood pressure increased [Unknown]

NARRATIVE: CASE EVENT DATE: 20200730
